FAERS Safety Report 13982822 (Version 1)
Quarter: 2017Q3

REPORT INFORMATION
  Report Type: Spontaneous
  Country: JP (occurrence: JP)
  Receive Date: 20170918
  Receipt Date: 20170918
  Transmission Date: 20171128
  Serious: Yes (Other)
  Sender: FDA-Public Use
  Company Number: JP-BAYER-2017-171910

PATIENT
  Sex: Female

DRUGS (3)
  1. ACETYLSALICYLIC ACID({=100 MG) [Suspect]
     Active Substance: ASPIRIN
     Dosage: DAILY DOSE 81 MG
     Route: 048
  2. DANAPAROID SODIUM [Concomitant]
     Active Substance: DANAPAROID SODIUM
     Dosage: DAILY DOSE 2500 U
  3. PREDNISOLONE. [Concomitant]
     Active Substance: PREDNISOLONE
     Dosage: DAILY DOSE 10 MG

REACTIONS (5)
  - Pre-eclampsia [None]
  - Drug ineffective [None]
  - Premature delivery [None]
  - Maternal exposure during pregnancy [None]
  - Drug resistance [None]
